FAERS Safety Report 22349777 (Version 1)
Quarter: 2023Q2

REPORT INFORMATION
  Report Type: Spontaneous
  Country: US (occurrence: None)
  Receive Date: 20230519
  Receipt Date: 20230519
  Transmission Date: 20230721
  Serious: Yes (Hospitalization, Other)
  Sender: FDA-Public Use
  Company Number: None

PATIENT
  Age: 84 Year
  Sex: Male
  Weight: 84.1 kg

DRUGS (5)
  1. MEROPENEM [Suspect]
     Active Substance: MEROPENEM
     Indication: Bacteraemia
     Dosage: FREQUENCY : TWICE A DAY;?
     Route: 042
     Dates: start: 20230427, end: 20230501
  2. RITUXIMAB [Concomitant]
     Active Substance: RITUXIMAB
     Dates: end: 20230331
  3. VENETOCLAX [Concomitant]
     Active Substance: VENETOCLAX
     Dates: start: 20230401
  4. ERTAPENEM [Suspect]
     Active Substance: ERTAPENEM
  5. VANCOMYCIN [Suspect]
     Active Substance: VANCOMYCIN

REACTIONS (3)
  - Type IV hypersensitivity reaction [None]
  - Fatigue [None]
  - Muscular weakness [None]

NARRATIVE: CASE EVENT DATE: 20230430
